FAERS Safety Report 21375175 (Version 1)
Quarter: 2022Q3

REPORT INFORMATION
  Report Type: Spontaneous
  Country: GB (occurrence: GB)
  Receive Date: 20220926
  Receipt Date: 20220926
  Transmission Date: 20221027
  Serious: Yes (Hospitalization, Other)
  Sender: FDA-Public Use
  Company Number: GB-MHRA-MED-202209211751164860-JFWTK

PATIENT
  Age: 23 Year
  Sex: Female

DRUGS (2)
  1. ZONISAMIDE [Suspect]
     Active Substance: ZONISAMIDE
     Indication: Temporal lobe epilepsy
     Dosage: 50 MILLIGRAM, BID
     Route: 065
     Dates: start: 20220410, end: 20220830
  2. DULOXETINE [Concomitant]
     Active Substance: DULOXETINE
     Indication: Depression
     Dosage: UNK
     Route: 065
     Dates: start: 20220312, end: 20220907

REACTIONS (7)
  - Delusion [Recovering/Resolving]
  - Emotional distress [Recovered/Resolved with Sequelae]
  - Taste disorder [Recovered/Resolved]
  - Weight decreased [Recovering/Resolving]
  - Mania [Recovering/Resolving]
  - Back pain [Recovering/Resolving]
  - Illness [Recovered/Resolved]

NARRATIVE: CASE EVENT DATE: 20220524
